FAERS Safety Report 9681669 (Version 2)
Quarter: 2013Q4

REPORT INFORMATION
  Report Type: Report from Study
  Country: CA (occurrence: CA)
  Receive Date: 20131111
  Receipt Date: 20131115
  Transmission Date: 20140711
  Serious: Yes (Other)
  Sender: FDA-Public Use
  Company Number: PHHY2013CA127568

PATIENT
  Age: 38 Year
  Sex: Male

DRUGS (1)
  1. CLOZARIL [Suspect]
     Dosage: UNK
     Dates: start: 19960709

REACTIONS (4)
  - Left ventricular hypertrophy [Unknown]
  - Blood thyroid stimulating hormone increased [Unknown]
  - Electrocardiogram ST-T segment elevation [Unknown]
  - Bundle branch block right [Unknown]
